FAERS Safety Report 5545583-3 (Version None)
Quarter: 2007Q4

REPORT INFORMATION
  Report Type: 
  Country: None (occurrence: None)
  Receive Date: 20071206
  Receipt Date: 20071122
  Transmission Date: 20080405
  Serious: Yes (Life-Threatening, Hospitalization)
  Sender: FDA-Public Use
  Company Number: 2007AL005027

PATIENT
  Age: 64 Year
  Sex: Female

DRUGS (2)
  1. DILTIAZEM HYDROCHLORIDE EXTENDED-RELEASE CAPSULES USP, 300 MG (PUREPAC [Suspect]
  2. SIMVASTATIN [Concomitant]

REACTIONS (1)
  - RENAL FAILURE ACUTE [None]
